FAERS Safety Report 8215675-9 (Version None)
Quarter: 2012Q1

REPORT INFORMATION
  Report Type: 
  Country: None (occurrence: None)
  Receive Date: 20120316
  Receipt Date: 20120305
  Transmission Date: 20120608
  Serious: Yes (Death)
  Sender: FDA-Public Use
  Company Number: US-ROCHE-1048849

PATIENT
  Sex: Female

DRUGS (2)
  1. RITUXAN [Suspect]
     Indication: PANCYTOPENIA
     Dates: start: 20120225
  2. ALLOPURINOL [Concomitant]

REACTIONS (1)
  - PANCYTOPENIA [None]
